FAERS Safety Report 10361211 (Version 2)
Quarter: 2014Q3

REPORT INFORMATION
  Report Type: Spontaneous
  Country: US (occurrence: None)
  Receive Date: 20140731
  Receipt Date: 20140929
  Transmission Date: 20150326
  Serious: Yes (Other)
  Sender: FDA-Public Use
  Company Number: 2014070076

PATIENT
  Age: 40 Year
  Sex: Female

DRUGS (8)
  1. LAMICTAL XR [Suspect]
     Active Substance: LAMOTRIGINE
     Indication: PARTIAL SEIZURES
     Dosage: DAILY IN THE MORNING
     Dates: start: 20131119
  2. BUSPIRONE HYDROCHLORIDE. [Concomitant]
     Active Substance: BUSPIRONE HYDROCHLORIDE
  3. CITALOPRAM HYDROBROMIDE (CITALOPRAM HYDROBROMIDE) [Concomitant]
     Active Substance: CITALOPRAM HYDROBROMIDE
  4. DIAMOX (ACETAZOLAMIDE) [Concomitant]
  5. EFFEXOR  XR (VENLAFAXINE HYDROCHLORIDE EXTENDED RELEASE) [Concomitant]
  6. BUSPAR (BUSPIRONE HYDROCHLORIDE) [Concomitant]
  7. FELBATOL [Suspect]
     Active Substance: FELBAMATE
     Indication: PARTIAL SEIZURES
     Dosage: 2400 MG
     Route: 048
  8. FOLIC ACID. [Concomitant]
     Active Substance: FOLIC ACID

REACTIONS (11)
  - Headache [None]
  - Condition aggravated [None]
  - Joint injury [None]
  - Poor quality sleep [None]
  - Stress at work [None]
  - Aura [None]
  - Convulsion [None]
  - Pain in extremity [None]
  - Carpal tunnel syndrome [None]
  - Arthralgia [None]
  - Middle insomnia [None]
